FAERS Safety Report 19515405 (Version 1)
Quarter: 2021Q3

REPORT INFORMATION
  Report Type: Spontaneous
  Country: US (occurrence: US)
  Receive Date: 20210709
  Receipt Date: 20210709
  Transmission Date: 20211014
  Serious: Yes (Hospitalization)
  Sender: FDA-Public Use
  Company Number: US-ALLERGAN-2122462US

PATIENT
  Sex: Female

DRUGS (6)
  1. GENTEAL EYE OINTMENT [Concomitant]
     Indication: DRY EYE
     Dosage: AT BEDTIME
     Dates: end: 20210407
  2. ZIOPTAN [Concomitant]
     Active Substance: TAFLUPROST
     Indication: GLAUCOMA
     Dosage: 2 GTT, QHS
     Dates: start: 20210407
  3. LOTEMAX SM [Concomitant]
     Active Substance: LOTEPREDNOL ETABONATE
     Indication: DRY EYE
     Dosage: 2 GTT, BID
     Dates: start: 20210407
  4. RESTASIS [Suspect]
     Active Substance: CYCLOSPORINE
     Indication: DRY EYE
     Dosage: 2 GTT, BID
     Route: 047
  5. ARTIFICIAL TEARS [Concomitant]
     Active Substance: GLYCERIN\HYPROMELLOSES\POLYETHYLENE GLYCOL 400
     Indication: DRY EYE
     Dosage: 1 DROP BOTH EYES EVERY 2 HOURS AS NEEDED
     Dates: start: 20210407
  6. LATANOPROST. [Concomitant]
     Active Substance: LATANOPROST
     Indication: GLAUCOMA
     Dosage: 2 GTT, QD
     Dates: start: 20210407

REACTIONS (1)
  - Spinal operation [Recovering/Resolving]
